FAERS Safety Report 14949042 (Version 2)
Quarter: 2019Q1

REPORT INFORMATION
  Report Type: Spontaneous
  Country: FR (occurrence: FR)
  Receive Date: 20180529
  Receipt Date: 20190304
  Transmission Date: 20190417
  Serious: Yes (Hospitalization)
  Sender: FDA-Public Use
  Company Number: FR-PFIZER INC-2018214578

PATIENT
  Age: 56 Year
  Sex: Male
  Weight: 80 kg

DRUGS (2)
  1. ZYVOXID [Suspect]
     Active Substance: LINEZOLID
     Indication: LUNG DISORDER
     Dosage: 1200 MG, 1X/DAY
     Route: 048
     Dates: start: 20180325, end: 20180401
  2. VFEND [Suspect]
     Active Substance: VORICONAZOLE
     Indication: FUNGAL DISEASE CARRIER
     Dosage: 400 MG, 1X/DAY
     Route: 048
     Dates: start: 20180324, end: 20180402

REACTIONS (2)
  - Hepatocellular injury [Recovered/Resolved]
  - Product use issue [Unknown]

NARRATIVE: CASE EVENT DATE: 20180401
